FAERS Safety Report 4945114-2 (Version None)
Quarter: 2006Q1

REPORT INFORMATION
  Report Type: 
  Country: None (occurrence: None)
  Receive Date: 20060117
  Receipt Date: 20050816
  Transmission Date: 20060701
  Serious: Yes (Hospitalization)
  Sender: FDA-Public Use
  Company Number: A03200502525

PATIENT
  Age: 64 Year
  Sex: Male
  Weight: 122.45 kg

DRUGS (7)
  1. PLAVIX [Suspect]
     Indication: CORONARY ARTERIAL STENT INSERTION
     Dosage: 75 MG QD - ORAL
     Route: 048
     Dates: end: 20050812
  2. PLAVIX [Suspect]
     Indication: CORONARY ARTERY DISEASE
     Dosage: 75 MG QD - ORAL
     Route: 048
     Dates: end: 20050812
  3. ATORVASTATIN CALCIUM [Concomitant]
  4. METOPROLOL TARTRATE [Concomitant]
  5. LEVOTHYROXINE SODIUM [Concomitant]
  6. ACETYLSALICYLIC ACID SRT [Concomitant]
  7. NAPROXEN SODIUM [Concomitant]

REACTIONS (1)
  - FEBRILE NEUTROPENIA [None]
